FAERS Safety Report 20686324 (Version 1)
Quarter: 2022Q2

REPORT INFORMATION
  Report Type: Spontaneous
  Country: US (occurrence: US)
  Receive Date: 20220407
  Receipt Date: 20220407
  Transmission Date: 20220720
  Serious: No
  Sender: FDA-Public Use
  Company Number: US-JAZZ-2022-US-007295

PATIENT
  Sex: Female

DRUGS (8)
  1. SUNOSI [Suspect]
     Active Substance: SOLRIAMFETOL
     Indication: Product used for unknown indication
     Dosage: 75 MG TABLET, FOR TOTAL OF 49
     Route: 048
     Dates: start: 20201209
  2. SUNOSI [Suspect]
     Active Substance: SOLRIAMFETOL
     Dosage: TAKE 1 TABLET (150 MG) ORAL EVERY DAY, FOR A TOTAL 133
     Route: 048
     Dates: start: 20211012
  3. XHANCE [Concomitant]
     Active Substance: FLUTICASONE PROPIONATE
     Dosage: UNK
     Dates: start: 20200626
  4. XHANCE [Concomitant]
     Active Substance: FLUTICASONE PROPIONATE
     Dosage: TAKE 1 PUFFS TWO TIMES A DAY
     Route: 045
     Dates: start: 20210406
  5. PROPRANOLOL [Concomitant]
     Active Substance: PROPRANOLOL HYDROCHLORIDE
     Dosage: TAKE 1 TABLET ORAL TWO TIMES A DAY FOR TOTAL OF 180
     Dates: start: 20201209
  6. EMGALITY [Concomitant]
     Active Substance: GALCANEZUMAB-GNLM
     Dosage: 120 MILLIGRAM PER MILLILITRE, 90 DAYS
     Route: 058
     Dates: start: 20210921
  7. DIVALPROEX SODIUM [Concomitant]
     Active Substance: DIVALPROEX SODIUM
     Dosage: 500 MG TABLET EXTENDED RELEASE 24 HR, 2 TABLET ORAL EVERY DAY, 90 DAYS FOR A TOTAL 180 DAYS
     Dates: start: 20200310
  8. EPINEPHRINE [Concomitant]
     Active Substance: EPINEPHRINE
     Dosage: 0.3MG/0.3ML INJECTION, 1 DAY
     Dates: start: 20210426

REACTIONS (2)
  - Irritable bowel syndrome [Unknown]
  - Fatigue [Unknown]
